FAERS Safety Report 8883635 (Version 1)
Quarter: 2012Q4

REPORT INFORMATION
  Report Type: 
  Country: JP (occurrence: JP)
  Receive Date: 20121102
  Receipt Date: 20121102
  Transmission Date: 20130627
  Serious: Yes (Hospitalization)
  Sender: FDA-Public Use
  Company Number: JP-BRISTOL-MYERS SQUIBB COMPANY-17044322

PATIENT
  Age: 64 Year
  Sex: Male

DRUGS (4)
  1. BARACLUDE TABS 0.5 MG [Suspect]
     Indication: HEPATITIS B
     Route: 048
  2. BAKTAR [Concomitant]
  3. ALLEGRA [Concomitant]
  4. VFEND [Concomitant]

REACTIONS (1)
  - White blood cell count decreased [Recovering/Resolving]
